FAERS Safety Report 7071583-0 (Version None)
Quarter: 2010Q4

REPORT INFORMATION
  Report Type: 
  Country: None (occurrence: None)
  Receive Date: 20101029
  Receipt Date: 20101019
  Transmission Date: 20110411
  Serious: Yes (Hospitalization, Other)
  Sender: FDA-Public Use
  Company Number: US-JNJFOC-20100904102

PATIENT
  Sex: Female
  Weight: 86.18 kg

DRUGS (6)
  1. REMICADE [Suspect]
     Indication: CROHN'S DISEASE
     Route: 042
  2. REMICADE [Suspect]
     Route: 042
  3. HUMIRA [Suspect]
     Indication: PRODUCT USED FOR UNKNOWN INDICATION
  4. ZOLOFT [Concomitant]
  5. PREDNISONE [Concomitant]
  6. LIALDA [Concomitant]

REACTIONS (7)
  - ADVERSE DRUG REACTION [None]
  - ANAPHYLACTIC REACTION [None]
  - ERYTHEMA [None]
  - FLUSHING [None]
  - INFUSION RELATED REACTION [None]
  - THROAT TIGHTNESS [None]
  - TYPE III IMMUNE COMPLEX MEDIATED REACTION [None]
